FAERS Safety Report 13608526 (Version 1)
Quarter: 2017Q2

REPORT INFORMATION
  Report Type: Spontaneous
  Country: US (occurrence: US)
  Receive Date: 20170602
  Receipt Date: 20170602
  Transmission Date: 20170830
  Serious: No
  Sender: FDA-Public Use
  Company Number: US-PFIZER INC-3103678

PATIENT
  Age: 57 Year
  Sex: Female

DRUGS (3)
  1. SODIUM BICARBONATE. [Suspect]
     Active Substance: SODIUM BICARBONATE
  2. EPINEPHRINE/LIDOCAINE HYDROCHLORIDE [Suspect]
     Active Substance: EPINEPHRINE\LIDOCAINE HYDROCHLORIDE
     Indication: PRODUCT USED FOR UNKNOWN INDICATION
     Dosage: 100 ML, UNK
  3. SODIUM CHLORIDE. [Suspect]
     Active Substance: SODIUM CHLORIDE
     Indication: PRODUCT USED FOR UNKNOWN INDICATION
     Dosage: 1000 ML, UNK

REACTIONS (2)
  - Dizziness [Unknown]
  - Aphasia [Unknown]

NARRATIVE: CASE EVENT DATE: 20151201
